FAERS Safety Report 10385304 (Version 3)
Quarter: 2014Q3

REPORT INFORMATION
  Report Type: Spontaneous
  Country: US (occurrence: US)
  Receive Date: 20140814
  Receipt Date: 20140916
  Transmission Date: 20150326
  Serious: No
  Sender: FDA-Public Use
  Company Number: US-PFIZER INC-2014225289

PATIENT
  Sex: Male

DRUGS (3)
  1. LYRICA [Suspect]
     Active Substance: PREGABALIN
     Indication: FIBROMYALGIA
     Dosage: 75 MG, 2X/DAY
     Dates: start: 201407
  2. LYRICA [Suspect]
     Active Substance: PREGABALIN
     Indication: NERVE INJURY
     Dosage: 75 MG, UNK
     Dates: start: 201408
  3. LYRICA [Suspect]
     Active Substance: PREGABALIN
     Indication: NEURALGIA

REACTIONS (13)
  - Euphoric mood [Unknown]
  - Feeling abnormal [Unknown]
  - Anxiety [Unknown]
  - Confusional state [Unknown]
  - Panic attack [Unknown]
  - Aggression [Unknown]
  - Dizziness [Unknown]
  - Somnolence [Unknown]
  - Nervousness [Unknown]
  - Diarrhoea [Unknown]
  - Disturbance in attention [Unknown]
  - Muscle spasms [Unknown]
  - Abnormal behaviour [Unknown]

NARRATIVE: CASE EVENT DATE: 201407
